FAERS Safety Report 16791705 (Version 1)
Quarter: 2019Q3

REPORT INFORMATION
  Report Type: Spontaneous
  Country: JP (occurrence: JP)
  Receive Date: 20190910
  Receipt Date: 20190910
  Transmission Date: 20191005
  Serious: Yes (Other)
  Sender: FDA-Public Use
  Company Number: PHHY2019JP203959

PATIENT
  Age: 74 Year
  Sex: Male

DRUGS (6)
  1. COSOPT [Interacting]
     Active Substance: DORZOLAMIDE HYDROCHLORIDE\TIMOLOL MALEATE
     Indication: GLAUCOMA DRUG THERAPY
     Dosage: 1 PERCENT DORZOLAMIDE HYDROCHLORIDE AND 0.5 PERCENT TIMOLOL MALEATE
     Route: 061
  2. ALPHAGAN P [Interacting]
     Active Substance: BRIMONIDINE TARTRATE
     Indication: GLAUCOMA DRUG THERAPY
     Dosage: UNK UNK, BID
     Route: 047
  3. LATANOPROST. [Suspect]
     Active Substance: LATANOPROST
     Indication: GLAUCOMA DRUG THERAPY
     Dosage: UNK, QD (INSTILLATION)
     Route: 061
  4. SANCOBA [Interacting]
     Active Substance: CYANOCOBALAMIN
     Indication: OCULAR DISCOMFORT
  5. LUMIGAN [Interacting]
     Active Substance: BIMATOPROST
     Indication: GLAUCOMA DRUG THERAPY
     Dosage: UNK, QD
     Route: 061
  6. SANCOBA [Interacting]
     Active Substance: CYANOCOBALAMIN
     Indication: GLAUCOMA DRUG THERAPY
     Dosage: UNK, TID, INSTILLATION
     Route: 061

REACTIONS (7)
  - Corneal opacity [Recovering/Resolving]
  - Drug interaction [Unknown]
  - Keratitis interstitial [Unknown]
  - Corneal infiltrates [Unknown]
  - Conjunctival hyperaemia [Unknown]
  - Conjunctivitis [Unknown]
  - Corneal neovascularisation [Recovering/Resolving]
